FAERS Safety Report 7092150-9 (Version None)
Quarter: 2010Q4

REPORT INFORMATION
  Report Type: 
  Country: None (occurrence: None)
  Receive Date: 20101109
  Receipt Date: 20101101
  Transmission Date: 20110411
  Serious: Yes (Hospitalization, Other)
  Sender: FDA-Public Use
  Company Number: US-TEVA-253610USA

PATIENT
  Age: 48 Year
  Sex: Male

DRUGS (1)
  1. DIDANOSINE [Suspect]

REACTIONS (3)
  - HEPATIC STEATOSIS [None]
  - PORTAL HYPERTENSION [None]
  - SPLENOMEGALY [None]
